FAERS Safety Report 5649358-6 (Version None)
Quarter: 2008Q1

REPORT INFORMATION
  Report Type: 
  Country: None (occurrence: None)
  Receive Date: 20080304
  Receipt Date: 20080103
  Transmission Date: 20080703
  Serious: No
  Sender: FDA-Public Use
  Company Number: US-BAYER-200810310NA

PATIENT
  Age: 9 Year
  Sex: Male

DRUGS (1)
  1. MAGNEVIST [Suspect]
     Indication: NUCLEAR MAGNETIC RESONANCE IMAGING
     Dosage: TOTAL DAILY DOSE: 8 ML  UNIT DOSE: 8 ML
     Route: 042

REACTIONS (4)
  - COUGH [None]
  - RESPIRATORY DISTRESS [None]
  - URTICARIA [None]
  - WHEEZING [None]
